FAERS Safety Report 24345279 (Version 1)
Quarter: 2024Q3

REPORT INFORMATION
  Report Type: Spontaneous
  Country: JP (occurrence: JP)
  Receive Date: 20240920
  Receipt Date: 20240920
  Transmission Date: 20241017
  Serious: Yes (Hospitalization)
  Sender: MEITHEAL PHARMACEUTICALS
  Company Number: JP-MEITHEAL-2024MPLIT00285

PATIENT
  Age: 66 Year
  Sex: Female

DRUGS (8)
  1. DOCETAXEL [Suspect]
     Active Substance: DOCETAXEL\DOCETAXEL ANHYDROUS
     Indication: Lung carcinoma cell type unspecified recurrent
     Route: 065
  2. RAMUCIRUMAB [Suspect]
     Active Substance: RAMUCIRUMAB
     Indication: Lung carcinoma cell type unspecified recurrent
     Dosage: ON DAY 81
     Route: 065
  3. CARBOPLATIN [Concomitant]
     Active Substance: CARBOPLATIN
     Route: 065
  4. BEVACIZUMAB [Concomitant]
     Active Substance: BEVACIZUMAB
     Dosage: 02 CYCLES - COMBINATION WITH ATEZOLIZUMAB
     Route: 065
  5. PACLITAXEL [Concomitant]
     Active Substance: PACLITAXEL
     Dosage: COMPLETED  FOUR COURSES
     Route: 065
  6. ATEZOLIZUMAB [Concomitant]
     Active Substance: ATEZOLIZUMAB
     Dosage: 02 CYCLES -  COMBINATION WITH BEVACIZUMAB
     Route: 065
  7. OSIMERTINIB [Concomitant]
     Active Substance: OSIMERTINIB
     Dosage: FOR 2 YEARS AND 9 MONTHS
     Route: 065
  8. FUROSEMIDE [Concomitant]
     Active Substance: FUROSEMIDE
     Indication: Oedema peripheral
     Route: 042

REACTIONS (1)
  - Stress cardiomyopathy [Recovered/Resolved]
